FAERS Safety Report 8515154-5 (Version None)
Quarter: 2012Q3

REPORT INFORMATION
  Report Type: 
  Country: None (occurrence: None)
  Receive Date: 20120717
  Receipt Date: 20120709
  Transmission Date: 20120928
  Serious: Yes (Death, Hospitalization)
  Sender: FDA-Public Use
  Company Number: US-GLAXOSMITHKLINE-A0914936A

PATIENT
  Age: 77 Year
  Sex: Female

DRUGS (1)
  1. AVANDIA [Suspect]
     Indication: DIABETES MELLITUS
     Route: 048
     Dates: start: 20010101, end: 20061011

REACTIONS (14)
  - HEAD INJURY [None]
  - CHEST PAIN [None]
  - CORONARY ARTERY DISEASE [None]
  - PNEUMONIA [None]
  - THROMBOCYTOPENIA [None]
  - SYNCOPE [None]
  - RENAL FAILURE ACUTE [None]
  - TUBERCULIN TEST POSITIVE [None]
  - FALL [None]
  - RADIUS FRACTURE [None]
  - DIALYSIS [None]
  - MYOCARDIAL INFARCTION [None]
  - HAND FRACTURE [None]
  - PULMONARY OEDEMA [None]
